FAERS Safety Report 8459005-6 (Version None)
Quarter: 2012Q2

REPORT INFORMATION
  Report Type: 
  Country: None (occurrence: None)
  Receive Date: 20120618
  Receipt Date: 20120614
  Transmission Date: 20120825
  Serious: Yes (Hospitalization, Other)
  Sender: FDA-Public Use
  Company Number: ADR-2011-11453

PATIENT
  Sex: Female

DRUGS (1)
  1. LIORESAL [Suspect]
     Indication: MUSCLE SPASTICITY
     Dosage: 532.4 MCG, DAILY, INTRATHECAL
     Route: 037

REACTIONS (5)
  - MALAISE [None]
  - HEADACHE [None]
  - IMPLANT SITE EFFUSION [None]
  - INJURY [None]
  - IMPLANT SITE INFECTION [None]
